FAERS Safety Report 25716763 (Version 1)
Quarter: 2025Q3

REPORT INFORMATION
  Report Type: Spontaneous
  Country: CN (occurrence: CN)
  Receive Date: 20250822
  Receipt Date: 20250822
  Transmission Date: 20251021
  Serious: Yes (Hospitalization, Other)
  Sender: SANOFI AVENTIS
  Company Number: CN-SA-2025SA247681

PATIENT
  Age: 52 Year
  Sex: Male

DRUGS (4)
  1. OXALIPLATIN [Suspect]
     Active Substance: OXALIPLATIN
     Indication: Hepatic cancer
     Route: 065
     Dates: start: 20250527, end: 20250527
  2. LEUCOVORIN CALCIUM [Suspect]
     Active Substance: LEUCOVORIN CALCIUM
     Indication: Hepatic cancer
     Dosage: 0.68 G, QD
     Route: 065
     Dates: start: 20250527, end: 20250527
  3. FLUOROURACIL [Suspect]
     Active Substance: FLUOROURACIL
     Indication: Hepatic cancer
     Dosage: 4.128 G, QD
     Route: 065
     Dates: start: 20250527, end: 20250527
  4. FLUOROURACIL [Suspect]
     Active Substance: FLUOROURACIL
     Dosage: 0.68 G, QD
     Route: 065
     Dates: start: 20250527, end: 20250527

REACTIONS (4)
  - Melaena [Unknown]
  - Hepatic cirrhosis [Unknown]
  - Myelosuppression [Recovering/Resolving]
  - Haemorrhage [Unknown]

NARRATIVE: CASE EVENT DATE: 20250101
